FAERS Safety Report 5167964-2 (Version None)
Quarter: 2006Q4

REPORT INFORMATION
  Report Type: 
  Country: None (occurrence: None)
  Receive Date: 20061208
  Receipt Date: 20051128
  Transmission Date: 20070319
  Serious: No
  Sender: FDA-Public Use
  Company Number: US-GLAXOSMITHKLINE-A0583700A

PATIENT
  Age: 75 Year
  Sex: Male

DRUGS (6)
  1. AVANDAMET [Suspect]
     Indication: INSULIN RESISTANCE
     Dosage: 1TAB ALTERNATE DAYS
     Route: 048
  2. AVANDIA [Suspect]
     Indication: INSULIN RESISTANCE
     Dosage: 2MG PER DAY
     Route: 048
     Dates: start: 20041201
  3. LIPITOR [Concomitant]
  4. FOSAMAX [Concomitant]
  5. ACE INHIBITOR [Concomitant]
  6. BETA-BLOCKER [Concomitant]

REACTIONS (3)
  - COUGH [None]
  - POSTNASAL DRIP [None]
  - UPPER RESPIRATORY TRACT INFECTION [None]
